FAERS Safety Report 5529064-9 (Version None)
Quarter: 2007Q4

REPORT INFORMATION
  Report Type: 
  Country: None (occurrence: None)
  Receive Date: 20071129
  Receipt Date: 20061019
  Transmission Date: 20080405
  Serious: No
  Sender: FDA-Public Use
  Company Number: A0624239A

PATIENT
  Sex: Male

DRUGS (1)
  1. WELLBUTRIN [Suspect]
     Indication: DRUG USE FOR UNKNOWN INDICATION
     Dosage: 150MG UNKNOWN
     Route: 048

REACTIONS (3)
  - HEADACHE [None]
  - INSOMNIA [None]
  - TINNITUS [None]
